FAERS Safety Report 15994517 (Version 1)
Quarter: 2019Q1

REPORT INFORMATION
  Report Type: Spontaneous
  Country: US (occurrence: US)
  Receive Date: 20190222
  Receipt Date: 20190222
  Transmission Date: 20190418
  Serious: No
  Sender: FDA-Public Use
  Company Number: US-INSYS THERAPEUTICS, INC-INS201805-000154

PATIENT
  Sex: Female

DRUGS (10)
  1. BUTRANS [Concomitant]
     Active Substance: BUPRENORPHINE
     Indication: PAIN
  2. HYDROMORPHONE [Concomitant]
     Active Substance: HYDROMORPHONE
     Indication: PAIN
     Dates: start: 20180504
  3. OXYMORPHONE [Concomitant]
     Active Substance: OXYMORPHONE
     Indication: PAIN
  4. SUBSYS [Suspect]
     Active Substance: FENTANYL
  5. SOMA [Concomitant]
     Active Substance: CARISOPRODOL
  6. SUBSYS [Suspect]
     Active Substance: FENTANYL
     Indication: ALLODYNIA
     Dates: start: 201403, end: 201408
  7. ADDERALL [Concomitant]
     Active Substance: AMPHETAMINE ASPARTATE\AMPHETAMINE SULFATE\DEXTROAMPHETAMINE SACCHARATE\DEXTROAMPHETAMINE SULFATE
  8. XANAX [Concomitant]
     Active Substance: ALPRAZOLAM
     Indication: ANXIETY
  9. SUBSYS [Suspect]
     Active Substance: FENTANYL
     Indication: FIBROMYALGIA
     Dates: start: 20180405
  10. VALIUM [Concomitant]
     Active Substance: DIAZEPAM
     Indication: SOMNOLENCE

REACTIONS (1)
  - Drug effect incomplete [Unknown]
